FAERS Safety Report 22712958 (Version 3)
Quarter: 2023Q4

REPORT INFORMATION
  Report Type: Spontaneous
  Country: US (occurrence: US)
  Receive Date: 20230717
  Receipt Date: 20231208
  Transmission Date: 20240110
  Serious: No
  Sender: FDA-Public Use
  Company Number: US-PFIZER INC-PV202300036529

PATIENT
  Age: 60 Year
  Sex: Female

DRUGS (15)
  1. IBRANCE [Suspect]
     Active Substance: PALBOCICLIB
     Dosage: 100 MG, 1X/DAY
     Route: 048
     Dates: start: 202212
  2. IBRANCE [Suspect]
     Active Substance: PALBOCICLIB
     Dosage: ONCE A DAY FOR 21 DAYS, THEN 7 DAYS OFF
     Route: 048
     Dates: start: 20230110, end: 20230225
  3. IBRANCE [Suspect]
     Active Substance: PALBOCICLIB
     Dosage: UNK
     Dates: start: 20230629
  4. IBRANCE [Suspect]
     Active Substance: PALBOCICLIB
     Dosage: 1 TABLET DAILY FOR 21 DAYS, THEN 7 DAYS OFF
     Route: 048
     Dates: start: 20230404, end: 20231020
  5. ATORVASTATIN [Concomitant]
     Active Substance: ATORVASTATIN
  6. ASPIRIN [Concomitant]
     Active Substance: ASPIRIN
     Dosage: LOW DOSE
  7. IMODIUM [Concomitant]
     Active Substance: LOPERAMIDE HYDROCHLORIDE
  8. LETROZOLE [Concomitant]
     Active Substance: LETROZOLE
  9. LEVOTHYROXINE [Concomitant]
     Active Substance: LEVOTHYROXINE
  10. LORATADINE [Concomitant]
     Active Substance: LORATADINE
  11. LORAZEPAM [Concomitant]
     Active Substance: LORAZEPAM
  12. LOSARTAN [Concomitant]
     Active Substance: LOSARTAN
  13. SERTRALINE [Concomitant]
     Active Substance: SERTRALINE HYDROCHLORIDE
     Dosage: 100 MG
  14. SERTRALINE [Concomitant]
     Active Substance: SERTRALINE HYDROCHLORIDE
     Dosage: 50 MG
  15. VITAMIN D2 [Concomitant]
     Active Substance: ERGOCALCIFEROL

REACTIONS (8)
  - White blood cell count decreased [Recovered/Resolved]
  - Infection [Recovered/Resolved]
  - Nausea [Not Recovered/Not Resolved]
  - Headache [Not Recovered/Not Resolved]
  - Diarrhoea [Recovered/Resolved]
  - Dry skin [Not Recovered/Not Resolved]
  - Urinary tract infection [Recovered/Resolved]
  - Intentional dose omission [Unknown]

NARRATIVE: CASE EVENT DATE: 20230101
